FAERS Safety Report 15093002 (Version 1)
Quarter: 2018Q2

REPORT INFORMATION
  Report Type: Report from Study
  Country: IT (occurrence: IT)
  Receive Date: 20180629
  Receipt Date: 20180629
  Transmission Date: 20180711
  Serious: Yes (Hospitalization)
  Sender: FDA-Public Use
  Company Number: IT-PFIZER INC-2018261739

PATIENT
  Age: 51 Year
  Sex: Female

DRUGS (4)
  1. DEXAMETHASONE. [Concomitant]
     Active Substance: DEXAMETHASONE
     Dosage: UNK
  2. DOXORUBICIN HCL [Suspect]
     Active Substance: DOXORUBICIN HYDROCHLORIDE
     Indication: BREAST CANCER
     Dosage: 85 MG, CYCLIC
     Route: 040
     Dates: start: 20160213, end: 20160213
  3. LIMICAN [Concomitant]
     Active Substance: ALIZAPRIDE HYDROCHLORIDE
     Dosage: UNK
  4. CYCLOPHOSPHAMIDE. [Suspect]
     Active Substance: CYCLOPHOSPHAMIDE
     Indication: BREAST CANCER
     Dosage: 850 MG, CYCLIC
     Route: 042
     Dates: start: 20160213, end: 20180213

REACTIONS (4)
  - Sepsis [Recovering/Resolving]
  - Systemic inflammatory response syndrome [Recovering/Resolving]
  - Febrile neutropenia [Recovering/Resolving]
  - Lymphangitis [Recovering/Resolving]

NARRATIVE: CASE EVENT DATE: 20180226
